FAERS Safety Report 21792457 (Version 1)
Quarter: 2022Q4

REPORT INFORMATION
  Report Type: Other
  Country: US (occurrence: None)
  Receive Date: 20221229
  Receipt Date: 20221229
  Transmission Date: 20230113
  Serious: Yes (Other)
  Sender: FDA-Public Use
  Company Number: US-ROCHE-3250297

PATIENT
  Age: 69 Year
  Sex: Female

DRUGS (1)
  1. RITUXAN [Suspect]
     Active Substance: RITUXIMAB
     Indication: Rheumatoid arthritis
     Dosage: INFUSE 1000 MG ON DAY(S) 1 AND DAY(S) 14 AS DIRECTED
     Route: 042

REACTIONS (1)
  - Gait inability [Unknown]
